FAERS Safety Report 14123238 (Version 1)
Quarter: 2017Q4

REPORT INFORMATION
  Report Type: Spontaneous
  Country: US (occurrence: None)
  Receive Date: 20171024
  Receipt Date: 20171024
  Transmission Date: 20180321
  Serious: Yes (Hospitalization)
  Sender: FDA-Public Use
  Company Number: None

PATIENT
  Age: 67 Year
  Sex: Male
  Weight: 76.2 kg

DRUGS (2)
  1. VALPROIC ACID. [Suspect]
     Active Substance: VALPROIC ACID
     Indication: BIPOLAR DISORDER
     Route: 048
     Dates: start: 20120222
  2. VALPROIC ACID. [Suspect]
     Active Substance: VALPROIC ACID
     Indication: MANIA
     Route: 048
     Dates: start: 20120222

REACTIONS (7)
  - Fall [None]
  - Pain in extremity [None]
  - Confusional state [None]
  - Aggression [None]
  - Foot fracture [None]
  - Ammonia increased [None]
  - Agitation [None]

NARRATIVE: CASE EVENT DATE: 20170704
